FAERS Safety Report 4790342-2 (Version None)
Quarter: 2005Q4

REPORT INFORMATION
  Report Type: 
  Country: None (occurrence: None)
  Receive Date: 20051005
  Receipt Date: 20051005
  Transmission Date: 20060501
  Serious: Yes (Life-Threatening, Hospitalization)
  Sender: FDA-Public Use
  Company Number: None

PATIENT
  Sex: Female

DRUGS (16)
  1. SPIRONOLACTONE [Suspect]
     Indication: HYPERTENSION
     Dosage: 12.5 MG PO
     Route: 048
  2. FUROSEMIDE [Suspect]
     Indication: HYPERTENSION
     Dosage: 40 MG PO
     Route: 048
  3. FUROSEMIDE [Concomitant]
  4. ATORVASTATIN [Concomitant]
  5. IRON [Concomitant]
  6. AMARYE [Concomitant]
  7. COREG [Concomitant]
  8. LEXAPRO [Concomitant]
  9. ASPIRIN [Concomitant]
  10. PLAVIX [Concomitant]
  11. SYNTHROID [Concomitant]
  12. ATACAND [Concomitant]
  13. LANTUS [Concomitant]
  14. PANTOPRAZOLE [Concomitant]
  15. ISOSORBIDE [Concomitant]
  16. METOCLOPRAMIDE [Concomitant]

REACTIONS (3)
  - BLOOD CREATININE INCREASED [None]
  - BLOOD POTASSIUM INCREASED [None]
  - BLOOD UREA DECREASED [None]
